FAERS Safety Report 8808182 (Version 4)
Quarter: 2015Q1

REPORT INFORMATION
  Report Type: Spontaneous
  Country: US (occurrence: US)
  Receive Date: 20120925
  Receipt Date: 20150326
  Transmission Date: 20150721
  Serious: Yes (Hospitalization)
  Sender: FDA-Public Use
  Company Number: US-ASTRAZENECA-2012SE71869

PATIENT
  Age: 58 Year
  Sex: Female

DRUGS (3)
  1. PRILOSEC [Suspect]
     Active Substance: OMEPRAZOLE MAGNESIUM
     Route: 048
  2. ZYRTEC [Concomitant]
     Active Substance: CETIRIZINE HYDROCHLORIDE
  3. NEXIUM [Suspect]
     Active Substance: ESOMEPRAZOLE MAGNESIUM
     Route: 048

REACTIONS (7)
  - Gastrointestinal erosion [Unknown]
  - Malaise [Unknown]
  - Pain [Unknown]
  - Central obesity [Unknown]
  - Drug ineffective [Unknown]
  - Gastrointestinal haemorrhage [Unknown]
  - Drug dose omission [Unknown]
